FAERS Safety Report 20181858 (Version 1)
Quarter: 2021Q4

REPORT INFORMATION
  Report Type: Spontaneous
  Country: BR (occurrence: BR)
  Receive Date: 20211214
  Receipt Date: 20211214
  Transmission Date: 20220303
  Serious: Yes (Other)
  Sender: FDA-Public Use
  Company Number: BR-NOVARTISPH-NVSC2021BR284010

PATIENT
  Sex: Male

DRUGS (1)
  1. MAXIDEX [Suspect]
     Active Substance: DEXAMETHASONE
     Indication: Product used for unknown indication
     Dosage: UNK, TID (1 MG ) (FROM APPROXIMATELY 3 YEARS AGO TO MORE THAN A WEEK AGO)
     Route: 065

REACTIONS (6)
  - Glaucoma [Unknown]
  - Blindness [Unknown]
  - Diabetes mellitus [Unknown]
  - Product availability issue [Unknown]
  - Eye inflammation [Not Recovered/Not Resolved]
  - Eye pain [Not Recovered/Not Resolved]
